FAERS Safety Report 9085560 (Version 1)
Quarter: 2013Q1

REPORT INFORMATION
  Report Type: Report from Study
  Country: FR (occurrence: FR)
  Receive Date: 20130130
  Receipt Date: 20130130
  Transmission Date: 20140127
  Serious: Yes (Other)
  Sender: FDA-Public Use
  Company Number: PHHO2013FR001512

PATIENT
  Sex: 0

DRUGS (6)
  1. ZOLEDRONATE [Suspect]
     Indication: BONE SARCOMA
     Dosage: 2.8 MG
     Route: 042
     Dates: start: 20110515
  2. METHOTREXATE [Concomitant]
     Dosage: 19.4 G
     Route: 042
     Dates: start: 20110516
  3. CISPLATINE [Concomitant]
     Dosage: 19.4 MG
     Route: 042
     Dates: start: 20111012
  4. DOXORUBICIN [Concomitant]
     Dosage: 61 MG
     Route: 042
     Dates: start: 20111007
  5. VP-16 [Concomitant]
     Dosage: 124 MG
     Route: 042
     Dates: start: 20110607
  6. IFOSFAMIDE [Concomitant]
     Dosage: 5 G
     Route: 042
     Dates: start: 20110607

REACTIONS (1)
  - Febrile bone marrow aplasia [Recovered/Resolved]
